FAERS Safety Report 9562495 (Version 2)
Quarter: 2013Q4

REPORT INFORMATION
  Report Type: Report from Study
  Country: US (occurrence: NZ)
  Receive Date: 20130927
  Receipt Date: 20131003
  Transmission Date: 20140711
  Serious: Yes (Other)
  Sender: FDA-Public Use
  Company Number: NZ-PFIZER INC-2013273865

PATIENT
  Age: 9 Month
  Sex: Female
  Weight: 9.1 kg

DRUGS (2)
  1. BRUFEN [Suspect]
     Indication: PYREXIA
     Dosage: 50 MG, 3X/DAY (5MG/KG/DOSE), SEVEN DOSES WERE GIVEN OVE NEXT 40 HOURS
     Route: 048
  2. ORAL REHYDRATION SALT [Concomitant]
     Dosage: UNK

REACTIONS (3)
  - Renal failure acute [Recovering/Resolving]
  - Rash maculo-papular [Unknown]
  - Vesicoureteric reflux [Unknown]
